FAERS Safety Report 4709512-4 (Version None)
Quarter: 2005Q3

REPORT INFORMATION
  Report Type: 
  Country: None (occurrence: None)
  Receive Date: 20050706
  Receipt Date: 20050706
  Transmission Date: 20060218
  Serious: Yes (Hospitalization)
  Sender: FDA-Public Use
  Company Number: None

PATIENT
  Sex: Female
  Weight: 103 kg

DRUGS (2)
  1. LITHIUM [Suspect]
     Indication: BIPOLAR DISORDER
     Dosage: 600 MG   QAM   ORAL
     Route: 048
  2. LITHIUM [Suspect]
     Indication: BIPOLAR DISORDER
     Dosage: 900 MG   QHS   ORAL
     Route: 048

REACTIONS (1)
  - NEPHROGENIC DIABETES INSIPIDUS [None]
